FAERS Safety Report 21918348 (Version 1)
Quarter: 2023Q1

REPORT INFORMATION
  Report Type: Report from Study
  Country: US (occurrence: US)
  Receive Date: 20230127
  Receipt Date: 20230127
  Transmission Date: 20230417
  Serious: Yes (Hospitalization)
  Sender: FDA-Public Use
  Company Number: US-ACADIA PHARMACEUTICALS INC.-ACA-2023-PIM-000228

PATIENT
  Age: 74 Year
  Sex: Male

DRUGS (16)
  1. NUPLAZID [Suspect]
     Active Substance: PIMAVANSERIN TARTRATE
     Indication: Hallucination
     Dosage: 34 MILLIGRAM, QD
     Route: 048
     Dates: start: 20230111, end: 20230118
  2. NUPLAZID [Suspect]
     Active Substance: PIMAVANSERIN TARTRATE
     Indication: Psychotic disorder
     Dosage: DOUBLE DOSE
     Route: 048
  3. NUPLAZID [Suspect]
     Active Substance: PIMAVANSERIN TARTRATE
     Indication: Parkinson^s disease
  4. NUPLAZID [Suspect]
     Active Substance: PIMAVANSERIN TARTRATE
     Indication: Parkinson^s disease psychosis
  5. ATORVASTATIN [Concomitant]
     Active Substance: ATORVASTATIN
  6. B COMPLEX WITH FOLIC ACID [Concomitant]
  7. DONEPEZIL [Concomitant]
     Active Substance: DONEPEZIL
  8. ELIQUIS [Concomitant]
     Active Substance: APIXABAN
  9. IBUPROFEN [Concomitant]
     Active Substance: IBUPROFEN
  10. LISINOPRIL [Concomitant]
     Active Substance: LISINOPRIL
  11. MELATONIN [Concomitant]
     Active Substance: MELATONIN
  12. METHIMAZOLE [Concomitant]
     Active Substance: METHIMAZOLE
  13. METOPROLOL [Concomitant]
     Active Substance: METOPROLOL
  14. VITAMINS [Concomitant]
     Active Substance: VITAMINS
  15. PANTOPRAZOLE [Concomitant]
     Active Substance: PANTOPRAZOLE
  16. QUETIAPINE [Concomitant]
     Active Substance: QUETIAPINE

REACTIONS (3)
  - Dizziness [Recovered/Resolved]
  - Abdominal discomfort [Recovered/Resolved]
  - Accidental overdose [Recovered/Resolved]

NARRATIVE: CASE EVENT DATE: 20230117
